FAERS Safety Report 24457991 (Version 1)
Quarter: 2024Q4

REPORT INFORMATION
  Report Type: Report from Study
  Country: GB (occurrence: GB)
  Receive Date: 20241018
  Receipt Date: 20241018
  Transmission Date: 20250115
  Serious: Yes (Death, Other)
  Sender: ALEXION PHARMACEUTICALS
  Company Number: GB-ALXN-202408GBR000363GB

PATIENT
  Age: 9 Year

DRUGS (8)
  1. KANUMA [Suspect]
     Active Substance: SEBELIPASE ALFA
     Dosage: UNK
  2. KANUMA [Suspect]
     Active Substance: SEBELIPASE ALFA
     Dosage: UNK
     Route: 065
  3. KANUMA [Suspect]
     Active Substance: SEBELIPASE ALFA
     Dosage: UNK
  4. KANUMA [Suspect]
     Active Substance: SEBELIPASE ALFA
     Dosage: UNK
     Route: 065
  5. KANUMA [Suspect]
     Active Substance: SEBELIPASE ALFA
     Dosage: 120 MILLIGRAM, QW
  6. KANUMA [Suspect]
     Active Substance: SEBELIPASE ALFA
     Dosage: 120 MILLIGRAM, QW
  7. KANUMA [Suspect]
     Active Substance: SEBELIPASE ALFA
     Dosage: 120 MILLIGRAM, QW
  8. KANUMA [Suspect]
     Active Substance: SEBELIPASE ALFA
     Dosage: 120 MILLIGRAM, QW

REACTIONS (1)
  - Death [Fatal]
